FAERS Safety Report 16478177 (Version 1)
Quarter: 2019Q2

REPORT INFORMATION
  Report Type: Spontaneous
  Country: US (occurrence: US)
  Receive Date: 20190626
  Receipt Date: 20190626
  Transmission Date: 20190711
  Serious: Yes (Hospitalization, Other)
  Sender: FDA-Public Use
  Company Number: US-PFIZER INC-2019271494

PATIENT
  Age: 67 Year
  Sex: Male
  Weight: 76.64 kg

DRUGS (29)
  1. ASPIRIN EC [Concomitant]
     Active Substance: ASPIRIN
     Dosage: UNK
     Route: 048
     Dates: start: 20180206
  2. DIPHENHYDRAMINE HCL [Concomitant]
     Active Substance: DIPHENHYDRAMINE HYDROCHLORIDE
     Indication: CARDIAC AMYLOIDOSIS
     Dosage: UNK
     Dates: start: 20181023
  3. FINASTERIDE. [Concomitant]
     Active Substance: FINASTERIDE
     Dosage: UNK
     Route: 048
     Dates: start: 20170801
  4. OXYBUTYNIN CHLORIDE. [Concomitant]
     Active Substance: OXYBUTYNIN CHLORIDE
     Dosage: 10 MG, DAILY
     Route: 048
     Dates: start: 20171003
  5. TAMSULOSIN HCL [Concomitant]
     Active Substance: TAMSULOSIN HYDROCHLORIDE
     Dosage: 0.4 MG, UNK
     Route: 048
     Dates: start: 20170801
  6. BYSTOLIC [Concomitant]
     Active Substance: NEBIVOLOL HYDROCHLORIDE
     Dosage: 10 MG, DAILY
     Route: 048
     Dates: start: 20180206
  7. BYSTOLIC [Concomitant]
     Active Substance: NEBIVOLOL HYDROCHLORIDE
     Dosage: 10 MG, 2X/DAY
     Route: 048
     Dates: start: 20180206
  8. DEXAMETHASONE SODIUM PHOSPHATE. [Concomitant]
     Active Substance: DEXAMETHASONE SODIUM PHOSPHATE
     Indication: CARDIAC AMYLOIDOSIS
     Dosage: 10 MG, UNK
     Route: 042
     Dates: start: 20181022
  9. FUROSEMIDE. [Concomitant]
     Active Substance: FUROSEMIDE
     Dosage: 20 MG, 2X/DAY
     Route: 048
     Dates: start: 20180806
  10. PANTOPRAZOLE SODIUM. [Concomitant]
     Active Substance: PANTOPRAZOLE SODIUM
     Indication: CARDIAC AMYLOIDOSIS
     Dosage: 40 MG, DAILY
     Route: 048
     Dates: start: 20180517
  11. BUDESONIDE. [Concomitant]
     Active Substance: BUDESONIDE
     Dosage: UNK
     Dates: start: 20171219
  12. ACETAMINOPHEN. [Concomitant]
     Active Substance: ACETAMINOPHEN
     Indication: CARDIAC AMYLOIDOSIS
     Dosage: 500 MG, UNK
     Route: 048
     Dates: start: 20181023
  13. DOXYCYCLINE. [Concomitant]
     Active Substance: DOXYCYCLINE
     Indication: CARDIAC AMYLOIDOSIS
     Dosage: 100 MG, 2X/DAY
     Route: 048
     Dates: start: 20180517
  14. ONPATTRO [Concomitant]
     Active Substance: PATISIRAN SODIUM
     Indication: CARDIAC AMYLOIDOSIS
     Dosage: 10 MG/5M INFUSE AS DIRECTED 0.3 MG/KG EVERY 3 WEEKS 15 ML
     Route: 042
     Dates: start: 20181106
  15. CIALIS [Concomitant]
     Active Substance: TADALAFIL
     Dosage: 5 MG, 1X/DAY
     Route: 048
     Dates: start: 20170307
  16. DIPHENHYDRAMINE HCL [Concomitant]
     Active Substance: DIPHENHYDRAMINE HYDROCHLORIDE
     Indication: AMYLOIDOSIS
  17. DUTASTERIDE. [Concomitant]
     Active Substance: DUTASTERIDE
     Dosage: 0.5 MG, DAILY
     Route: 048
     Dates: start: 20171019
  18. MIRTAZAPINE. [Concomitant]
     Active Substance: MIRTAZAPINE
     Indication: CARDIAC AMYLOIDOSIS
     Dosage: 15 MG, 1X/DAY(AT BEDTIME)
     Route: 048
     Dates: start: 20190402
  19. ONPATTRO [Concomitant]
     Active Substance: PATISIRAN SODIUM
     Indication: AMYLOIDOSIS
  20. DEXAMETHASONE SODIUM PHOSPHATE. [Concomitant]
     Active Substance: DEXAMETHASONE SODIUM PHOSPHATE
     Indication: AMYLOIDOSIS
     Dosage: UNK
     Route: 042
     Dates: start: 20181023
  21. FERROUS SULFATE. [Concomitant]
     Active Substance: FERROUS SULFATE
     Dosage: UNK
     Route: 048
  22. POTASSIUM CHLORIDE. [Concomitant]
     Active Substance: POTASSIUM CHLORIDE
     Dosage: 20 MEQ, DAILY
     Route: 048
     Dates: start: 20180806
  23. SUTENT [Suspect]
     Active Substance: SUNITINIB MALATE
     Indication: RENAL CELL CARCINOMA
     Dosage: 50 MG, UNK
     Route: 048
     Dates: start: 20170619
  24. NIFEDIPINE (II) [Concomitant]
     Indication: CARDIAC AMYLOIDOSIS
     Dosage: 30 MG, UNK
     Route: 048
     Dates: start: 20181030
  25. RANITIDINE HCL [Concomitant]
     Active Substance: RANITIDINE HYDROCHLORIDE
     Indication: AMYLOIDOSIS
  26. ZETIA [Concomitant]
     Active Substance: EZETIMIBE
     Dosage: 10 MG, UNK
     Route: 048
     Dates: start: 20170404
  27. ACETAMINOPHEN. [Concomitant]
     Active Substance: ACETAMINOPHEN
     Indication: AMYLOIDOSIS
     Dosage: 500 MG, UNK (500 MG ORALLY AT LEAST 60 MINUTES PRIOR TO ONPATTRO INFUSION EVERY 3 WEEKS)
     Route: 048
     Dates: start: 20181022
  28. ANDROGEL [Concomitant]
     Active Substance: TESTOSTERONE
     Dosage: UNK (20.25 MG/ACT (1.62%))
     Route: 062
     Dates: start: 20170314
  29. RANITIDINE HCL [Concomitant]
     Active Substance: RANITIDINE HYDROCHLORIDE
     Indication: CARDIAC AMYLOIDOSIS
     Dosage: 50 MG, UNK
     Route: 042
     Dates: start: 20181023

REACTIONS (5)
  - Cardiac failure chronic [Unknown]
  - Diarrhoea [Unknown]
  - Oedema [Unknown]
  - Chest discomfort [Unknown]
  - Neuropathy peripheral [Unknown]
